FAERS Safety Report 18636835 (Version 2)
Quarter: 2023Q4

REPORT INFORMATION
  Report Type: Spontaneous
  Country: US (occurrence: US)
  Receive Date: 20201218
  Receipt Date: 20231222
  Transmission Date: 20240110
  Serious: Yes (Death, Other)
  Sender: FDA-Public Use
  Company Number: US-TAKEDA-2020TUS058265

PATIENT

DRUGS (6)
  1. DEXILANT [Suspect]
     Active Substance: DEXLANSOPRAZOLE
     Indication: Gastrooesophageal reflux disease
     Dosage: UNK
     Route: 048
     Dates: start: 201203, end: 201708
  2. DEXILANT [Suspect]
     Active Substance: DEXLANSOPRAZOLE
     Dosage: 60 MILLIGRAM
     Route: 048
     Dates: start: 20140224, end: 20140723
  3. OMEPRAZOLE [Suspect]
     Active Substance: OMEPRAZOLE
     Indication: Gastrooesophageal reflux disease
     Dosage: UNK
     Route: 048
     Dates: start: 2012, end: 2017
  4. GABAPENTIN [Concomitant]
     Active Substance: GABAPENTIN
     Indication: Gastrooesophageal reflux disease
     Dosage: UNK
     Dates: start: 2018
  5. FUROSEMIDE [Concomitant]
     Active Substance: FUROSEMIDE
     Indication: Gastrooesophageal reflux disease
     Dosage: UNK
     Dates: start: 2018
  6. BACLOFEN [Concomitant]
     Active Substance: BACLOFEN
     Indication: Gastrooesophageal reflux disease
     Dosage: UNK
     Dates: start: 2018

REACTIONS (2)
  - Chronic kidney disease [Fatal]
  - End stage renal disease [Fatal]
